FAERS Safety Report 5341695-8 (Version None)
Quarter: 2007Q2

REPORT INFORMATION
  Report Type: 
  Country: None (occurrence: None)
  Receive Date: 20070530
  Receipt Date: 20070514
  Transmission Date: 20071010
  Serious: Yes (Hospitalization)
  Sender: FDA-Public Use
  Company Number: 6033276

PATIENT
  Age: 53 Year
  Sex: Male

DRUGS (7)
  1. ETOPOSIDE [Suspect]
     Indication: MALIGNANT NEOPLASM OF THORAX
     Dosage: 200 MG (200 MG, 1 IN 1 D)
     Route: 042
     Dates: start: 20070326, end: 20070328
  2. FASTURTEC(CONCENTRATE FOR SOLUTION FOR INFUSION) (RASBURICASE) [Suspect]
     Indication: MALIGNANT NEOPLASM OF THORAX
     Dosage: 7,5 MG (7,5 MG, 1 IN 1 D)
     Route: 042
     Dates: start: 20070326, end: 20070328
  3. ONDANSETRON [Suspect]
     Indication: PROPHYLAXIS OF NAUSEA AND VOMITING
     Dosage: SEE IMAGE
     Route: 042
     Dates: start: 20070326, end: 20070328
  4. CISPLATIN [Suspect]
     Indication: MALIGNANT NEOPLASM OF THORAX
     Dosage: 200 MG (200 MG, 1 IN 1 D)
     Route: 042
     Dates: start: 20070326, end: 20070326
  5. SOLU-MEDROL [Concomitant]
  6. PRIMERPAN (METOCLOPRAMIDE) [Concomitant]
  7. XANAX [Concomitant]

REACTIONS (3)
  - CONVULSION [None]
  - LOSS OF CONSCIOUSNESS [None]
  - URINARY INCONTINENCE [None]
